FAERS Safety Report 17945351 (Version 1)
Quarter: 2020Q2

REPORT INFORMATION
  Report Type: Report from Study
  Country: CA (occurrence: CA)
  Receive Date: 20200626
  Receipt Date: 20200626
  Transmission Date: 20200714
  Serious: Yes (Other)
  Sender: FDA-Public Use
  Company Number: CA-ROCHE-2480829

PATIENT
  Sex: Male

DRUGS (23)
  1. RITUXAN [Suspect]
     Active Substance: RITUXIMAB
     Dosage: SINGLE INFUSIONS (DAY 1 ONLY); ONGOING
     Route: 042
     Dates: start: 20180423
  2. ASPIRIN [ACETYLSALICYLIC ACID] [Concomitant]
     Active Substance: ASPIRIN
  3. MIDAMOR [Concomitant]
     Active Substance: AMILORIDE HYDROCHLORIDE
     Indication: HYPERTENSION
  4. QUETIAPINE. [Concomitant]
     Active Substance: QUETIAPINE
  5. DESONIDE. [Concomitant]
     Active Substance: DESONIDE
     Route: 065
  6. RITUXAN [Suspect]
     Active Substance: RITUXIMAB
     Indication: RHEUMATOID ARTHRITIS
     Dosage: DAY 1, DAY 15, ONGOING
     Route: 042
     Dates: start: 20170125, end: 20171012
  7. PANTOPRAZOLE [Concomitant]
     Active Substance: PANTOPRAZOLE
     Indication: PROPHYLAXIS
  8. ATIVAN [Concomitant]
     Active Substance: LORAZEPAM
     Indication: ANXIETY
  9. FINASTERIDE. [Concomitant]
     Active Substance: FINASTERIDE
  10. LEVOTHYROXINE. [Concomitant]
     Active Substance: LEVOTHYROXINE
  11. ELTROXIN [Concomitant]
     Active Substance: LEVOTHYROXINE
  12. PANTOPRAZOLE MAGNESIUM [Concomitant]
     Active Substance: PANTOPRAZOLE MAGNESIUM
  13. PREDNISONE. [Concomitant]
     Active Substance: PREDNISONE
  14. INSPIOLTO RESPIMAT [Concomitant]
     Active Substance: OLODATEROL HYDROCHLORIDE\TIOTROPIUM BROMIDE MONOHYDRATE
     Indication: CHRONIC OBSTRUCTIVE PULMONARY DISEASE
  15. TAMSULOSIN [Concomitant]
     Active Substance: TAMSULOSIN
  16. TRIAMTERENE. [Concomitant]
     Active Substance: TRIAMTERENE
  17. RITUXAN [Suspect]
     Active Substance: RITUXIMAB
     Dosage: LAST INFUSION DATE
     Route: 042
     Dates: start: 20190528
  18. AMLODIPINE [Concomitant]
     Active Substance: AMLODIPINE BESYLATE
  19. ADVAIR HFA [Concomitant]
     Active Substance: FLUTICASONE PROPIONATE\SALMETEROL XINAFOATE
  20. ALENDRONATE [Concomitant]
     Active Substance: ALENDRONATE SODIUM
     Indication: HYPERTENSION
  21. CORTEF [Concomitant]
     Active Substance: HYDROCORTISONE
     Indication: CHRONIC OBSTRUCTIVE PULMONARY DISEASE
  22. VENLAFAXINE [Concomitant]
     Active Substance: VENLAFAXINE HYDROCHLORIDE
  23. VITAMIN C [Concomitant]
     Active Substance: ASCORBIC ACID

REACTIONS (4)
  - Off label use [Unknown]
  - Abdominal pain [Not Recovered/Not Resolved]
  - Prostatomegaly [Not Recovered/Not Resolved]
  - Malaise [Unknown]
